FAERS Safety Report 8850658 (Version 1)
Quarter: 2012Q4

REPORT INFORMATION
  Report Type: 
  Country: FR (occurrence: FR)
  Receive Date: 20121019
  Receipt Date: 20121019
  Transmission Date: 20130627
  Serious: Yes (Life-Threatening, Other)
  Sender: FDA-Public Use
  Company Number: FR-ASTRAZENECA-2012SE79278

PATIENT
  Age: 40 Year
  Sex: Female

DRUGS (5)
  1. XEROQUEL [Suspect]
     Indication: BIPOLAR I DISORDER
     Route: 048
     Dates: start: 201208
  2. XEROQUEL [Suspect]
     Indication: BIPOLAR I DISORDER
     Route: 048
  3. THERALENE [Suspect]
     Route: 065
  4. ZOLOFT [Concomitant]
     Indication: DEPRESSION
     Route: 048
  5. TERCIAN [Concomitant]

REACTIONS (2)
  - Suicide attempt [Recovered/Resolved]
  - Hepatic enzyme abnormal [Not Recovered/Not Resolved]
